FAERS Safety Report 19824165 (Version 2)
Quarter: 2021Q3

REPORT INFORMATION
  Report Type: Spontaneous
  Country: JP (occurrence: JP)
  Receive Date: 20210913
  Receipt Date: 20210914
  Transmission Date: 20211014
  Serious: Yes (Other)
  Sender: FDA-Public Use
  Company Number: JP-ASTRAZENECA-2020SE16945

PATIENT
  Age: 40 Year
  Sex: Female

DRUGS (1)
  1. LYNPARZA [Suspect]
     Active Substance: OLAPARIB
     Indication: BREAST CANCER
     Dosage: DOSE UNKNOWN
     Route: 048
     Dates: start: 20191115

REACTIONS (5)
  - Hepatomegaly [Unknown]
  - Portal hypertension [Unknown]
  - Malignant neoplasm progression [Unknown]
  - Splenomegaly [Unknown]
  - Platelet count decreased [Recovering/Resolving]
